FAERS Safety Report 15107173 (Version 2)
Quarter: 2018Q3

REPORT INFORMATION
  Report Type: Spontaneous
  Country: US (occurrence: US)
  Receive Date: 20180704
  Receipt Date: 20180709
  Transmission Date: 20181010
  Serious: Yes (Other)
  Sender: FDA-Public Use
  Company Number: US-PFIZER INC-2018269812

PATIENT

DRUGS (1)
  1. DOBUTAMINE HCL [Suspect]
     Active Substance: DOBUTAMINE HYDROCHLORIDE
     Indication: STRESS
     Dosage: 10 UG, UNK (IT^S IN THE 5% DEXTROSE INJECTION SO THAT^S 1000 MICRO GRAM PER ML)
     Route: 042

REACTIONS (3)
  - Hypotension [Unknown]
  - Headache [Recovered/Resolved]
  - Hypertension [Recovered/Resolved]
